FAERS Safety Report 26125352 (Version 1)
Quarter: 2025Q4

REPORT INFORMATION
  Report Type: Spontaneous
  Country: TR (occurrence: TR)
  Receive Date: 20251205
  Receipt Date: 20251205
  Transmission Date: 20260118
  Serious: Yes (Other)
  Sender: BIOTEST
  Company Number: TR-BIOTEST-016274

PATIENT
  Age: 77 Year
  Sex: Female

DRUGS (3)
  1. HUMAN IMMUNOGLOBULIN G [Suspect]
     Active Substance: HUMAN IMMUNOGLOBULIN G
     Indication: Polymyositis
     Dosage: 2 TIMES
  2. METHYLPREDNISOLONE [Concomitant]
     Active Substance: METHYLPREDNISOLONE
     Indication: Polymyositis
  3. RITUXIMAB [Concomitant]
     Active Substance: RITUXIMAB
     Indication: Polymyositis

REACTIONS (2)
  - Cerebral venous sinus thrombosis [Recovered/Resolved]
  - Drug ineffective for unapproved indication [Unknown]
